FAERS Safety Report 15932665 (Version 2)
Quarter: 2019Q1

REPORT INFORMATION
  Report Type: Spontaneous
  Country: CN (occurrence: CN)
  Receive Date: 20190207
  Receipt Date: 20190208
  Transmission Date: 20190417
  Serious: Yes (Other)
  Sender: FDA-Public Use
  Company Number: CN-GLAXOSMITHKLINE-CN2019GSK017575

PATIENT
  Age: 61 Year
  Sex: Male

DRUGS (4)
  1. LAMIVUDINE. [Suspect]
     Active Substance: LAMIVUDINE
     Indication: HEPATITIS B
     Dosage: UNK
     Route: 048
  2. GLUTATHIONE INJECTION [Concomitant]
     Dosage: 1.8 G, IV DRIP
  3. R-CHOP CHEMOTHERAPY [Interacting]
     Active Substance: CYCLOPHOSPHAMIDE\DOXORUBICIN\PREDNISONE\RITUXIMAB\VINCRISTINE
     Indication: B-CELL LYMPHOMA
     Dosage: UNK
     Dates: start: 20141107
  4. ORNITHINE ASPARTATE [Concomitant]
     Active Substance: ORNITHINE ASPARTATE
     Dosage: 5 G, IV DRIP

REACTIONS (5)
  - Transaminases increased [Recovered/Resolved]
  - Viral mutation identified [Unknown]
  - Pathogen resistance [Unknown]
  - Drug resistance [Unknown]
  - Hepatitis B reactivation [Recovered/Resolved]

NARRATIVE: CASE EVENT DATE: 201411
